FAERS Safety Report 13651625 (Version 2)
Quarter: 2017Q3

REPORT INFORMATION
  Report Type: Spontaneous
  Country: JP (occurrence: JP)
  Receive Date: 20170614
  Receipt Date: 20170814
  Transmission Date: 20171127
  Serious: Yes (Hospitalization)
  Sender: FDA-Public Use
  Company Number: JP-SA-2017SA105335

PATIENT
  Age: 45 Year
  Sex: Female
  Weight: 45.9 kg

DRUGS (6)
  1. PARA PLUS [Concomitant]
     Route: 042
  2. FLUMARIN [Concomitant]
     Active Substance: FLOMOXEF SODIUM
     Route: 042
  3. CLEXANE [Suspect]
     Active Substance: ENOXAPARIN SODIUM
     Route: 058
     Dates: start: 20170311, end: 20170311
  4. PANTOL [Concomitant]
     Active Substance: DEXPANTHENOL
     Route: 065
  5. PRIMPERAN [Concomitant]
     Active Substance: METOCLOPRAMIDE HYDROCHLORIDE
     Route: 065
  6. LOXOPROFEN [Concomitant]
     Active Substance: LOXOPROFEN
     Route: 048

REACTIONS (1)
  - Jaundice [Recovering/Resolving]

NARRATIVE: CASE EVENT DATE: 20170311
